FAERS Safety Report 18845550 (Version 1)
Quarter: 2021Q1

REPORT INFORMATION
  Report Type: Report from Study
  Country: US (occurrence: US)
  Receive Date: 20210203
  Receipt Date: 20210203
  Transmission Date: 20210419
  Serious: No
  Sender: FDA-Public Use
  Company Number: US-EXELIXIS-CABO-20029247

PATIENT
  Sex: Female

DRUGS (14)
  1. CABOMETYX [Suspect]
     Active Substance: CABOZANTINIB S-MALATE
     Dosage: 20 MG, QD
     Route: 048
     Dates: start: 20200416
  2. METOPROLOL. [Concomitant]
     Active Substance: METOPROLOL
  3. LORATADINE. [Concomitant]
     Active Substance: LORATADINE
  4. CABOMETYX [Suspect]
     Active Substance: CABOZANTINIB S-MALATE
     Indication: RENAL CANCER
     Dosage: 3 TABLETS, DAILY
     Route: 048
  5. CABOMETYX [Suspect]
     Active Substance: CABOZANTINIB S-MALATE
     Dosage: 2 TABLETS, DAILY
     Route: 048
  6. TYLENOL [Concomitant]
     Active Substance: ACETAMINOPHEN
  7. LANTUS [Concomitant]
     Active Substance: INSULIN GLARGINE
  8. HUMALOG [Concomitant]
     Active Substance: INSULIN LISPRO
  9. PREDNISONE. [Concomitant]
     Active Substance: PREDNISONE
  10. SYNTHROID [Concomitant]
     Active Substance: LEVOTHYROXINE SODIUM
  11. NORVASC [Concomitant]
     Active Substance: AMLODIPINE BESYLATE
  12. CALCIUM [Concomitant]
     Active Substance: CALCIUM
  13. OMEPRAZOLE. [Concomitant]
     Active Substance: OMEPRAZOLE
  14. GLIMEPIRIDE. [Concomitant]
     Active Substance: GLIMEPIRIDE

REACTIONS (3)
  - Dyspnoea [Unknown]
  - Blood pressure increased [Not Recovered/Not Resolved]
  - Loss of consciousness [Unknown]
